FAERS Safety Report 21536302 (Version 1)
Quarter: 2022Q4

REPORT INFORMATION
  Report Type: Spontaneous
  Country: CN (occurrence: CN)
  Receive Date: 20221101
  Receipt Date: 20221101
  Transmission Date: 20230112
  Serious: Yes (Other)
  Sender: FDA-Public Use
  Company Number: CN-AMGEN-CHNSP2022184519

PATIENT
  Age: 15 Year
  Sex: Male

DRUGS (9)
  1. BLINATUMOMAB [Suspect]
     Active Substance: BLINATUMOMAB
     Indication: Precursor B-lymphoblastic lymphoma refractory
     Dosage: 5 MICROGRAM/ METER SQUARE
     Route: 040
     Dates: start: 2021
  2. BLINATUMOMAB [Suspect]
     Active Substance: BLINATUMOMAB
     Dosage: 15 MICROGRAM/ METER SQUARE
     Route: 040
  3. CYTARABINE [Concomitant]
     Active Substance: CYTARABINE
     Indication: B precursor type acute leukaemia
     Dosage: 4 GRAM PER SQUARE METRE
     Route: 040
     Dates: start: 202110
  4. BUSULFAN [Concomitant]
     Active Substance: BUSULFAN
     Indication: B precursor type acute leukaemia
     Dosage: 0.8 MILLIGRAM PER KILOGRAM
     Route: 040
     Dates: start: 202110
  5. CYCLOPHOSPHAMIDE [Concomitant]
     Active Substance: CYCLOPHOSPHAMIDE
     Indication: B precursor type acute leukaemia
     Dosage: 1.8 GRAM PER SQUARE METRE
     Route: 040
     Dates: start: 202110
  6. LAPINE T-LYMPHOCYTE IMMUNE GLOBULIN [Concomitant]
     Active Substance: LAPINE T-LYMPHOCYTE IMMUNE GLOBULIN
     Indication: B precursor type acute leukaemia
     Dosage: 2.5 MILLIGRAM PER KILOGRAM
     Route: 040
     Dates: start: 202110
  7. SEMUSTINE [Concomitant]
     Active Substance: SEMUSTINE
     Indication: B precursor type acute leukaemia
     Dosage: 250 MILLIGRAM PER SQUARE METER
     Route: 048
     Dates: start: 202110
  8. HEMATOPOIETIC PERIPHERAL BLOOD STEM CELLS [Concomitant]
     Indication: Allogenic stem cell transplantation
     Dosage: 193 MILLILITER
     Dates: start: 2021
  9. FLUMATINIB [Concomitant]
     Active Substance: FLUMATINIB
     Indication: B precursor type acute leukaemia
     Dosage: UNK

REACTIONS (2)
  - Acute graft versus host disease in skin [Recovering/Resolving]
  - Neutrophil count decreased [Unknown]

NARRATIVE: CASE EVENT DATE: 20211101
